FAERS Safety Report 12865036 (Version 1)
Quarter: 2016Q4

REPORT INFORMATION
  Report Type: Spontaneous
  Country: US (occurrence: US)
  Receive Date: 20161019
  Receipt Date: 20161019
  Transmission Date: 20170207
  Serious: Yes (Other)
  Sender: FDA-Public Use
  Company Number: None

PATIENT
  Age: 72 Year
  Sex: Female
  Weight: 66.6 kg

DRUGS (23)
  1. PEPCID [Concomitant]
     Active Substance: FAMOTIDINE
  2. ASACOL [Concomitant]
     Active Substance: MESALAMINE
  3. PHENERGAN [Concomitant]
     Active Substance: PROMETHAZINE HYDROCHLORIDE
  4. ZETIA [Concomitant]
     Active Substance: EZETIMIBE
  5. PROTONIX [Concomitant]
     Active Substance: PANTOPRAZOLE SODIUM
  6. GABAPENTIN. [Concomitant]
     Active Substance: GABAPENTIN
  7. SANCTURA [Concomitant]
     Active Substance: TROSPIUM CHLORIDE
  8. SINGULAIR [Concomitant]
     Active Substance: MONTELUKAST SODIUM
  9. RESTORIL [Concomitant]
     Active Substance: TEMAZEPAM
  10. CARBIDOPA/LEVEADOPA [Concomitant]
  11. AMITIZA [Concomitant]
     Active Substance: LUBIPROSTONE
  12. CIMZIA [Suspect]
     Active Substance: CERTOLIZUMAB PEGOL
     Indication: CROHN^S DISEASE
     Dosage: ?          QUANTITY:2 INJECTION(S);OTHER FREQUENCY:1 TIME A MONTH;OTHER ROUTE:INJECTED SUBCUTANEOUSLY?
     Route: 058
     Dates: start: 20160705, end: 20160913
  13. SYNTHROID [Concomitant]
     Active Substance: LEVOTHYROXINE SODIUM
  14. MELATONIN [Concomitant]
     Active Substance: MELATONIN
  15. XANAX [Concomitant]
     Active Substance: ALPRAZOLAM
  16. DILAUDID [Concomitant]
     Active Substance: HYDROMORPHONE HYDROCHLORIDE
  17. ENTACAPONE. [Concomitant]
     Active Substance: ENTACAPONE
  18. OXYCODONE/ACETOMINPHEN [Concomitant]
  19. SUCRALFATE. [Concomitant]
     Active Substance: SUCRALFATE
  20. EVISTA [Concomitant]
     Active Substance: RALOXIFENE HYDROCHLORIDE
  21. BACLOFEN. [Concomitant]
     Active Substance: BACLOFEN
  22. KEPPRA [Concomitant]
     Active Substance: LEVETIRACETAM
  23. LEXAPRO [Concomitant]
     Active Substance: ESCITALOPRAM OXALATE

REACTIONS (3)
  - Pain in extremity [None]
  - Tendon rupture [None]
  - Rotator cuff syndrome [None]

NARRATIVE: CASE EVENT DATE: 20160809
